FAERS Safety Report 6588775-7 (Version None)
Quarter: 2010Q1

REPORT INFORMATION
  Report Type: 
  Country: None (occurrence: None)
  Receive Date: 20100212
  Receipt Date: 20100127
  Transmission Date: 20100710
  Serious: Yes (Hospitalization, Other)
  Sender: FDA-Public Use
  Company Number: VAL_00369_2010

PATIENT
  Age: 69 Year
  Sex: Female

DRUGS (1)
  1. ROCALTROL [Suspect]
     Indication: HYPERPARATHYROIDISM SECONDARY
     Dosage: 1 UG 1X/WEEK INTRAVENOUS (NOT OTHERWISE SPECIFIED)
     Route: 042
     Dates: start: 20090301

REACTIONS (8)
  - ALTERED STATE OF CONSCIOUSNESS [None]
  - ARTHRALGIA [None]
  - DECREASED APPETITE [None]
  - DELIRIUM [None]
  - DYSARTHRIA [None]
  - HYPERCALCAEMIA [None]
  - SOMNOLENCE [None]
  - VERTIGO [None]
